FAERS Safety Report 5488948-0 (Version None)
Quarter: 2007Q4

REPORT INFORMATION
  Report Type: 
  Country: None (occurrence: None)
  Receive Date: 20071016
  Receipt Date: 20071002
  Transmission Date: 20080405
  Serious: Yes (Death, Other)
  Sender: FDA-Public Use
  Company Number: 2007-03320

PATIENT
  Age: 78 Year
  Sex: Male
  Weight: 49 kg

DRUGS (3)
  1. VELCADE [Suspect]
     Indication: MULTIPLE MYELOMA
     Dosage: 1.00 MG/M2, INTRAVENOUS
     Route: 042
     Dates: start: 20070910, end: 20070921
  2. DEXAMETHASONE TAB [Suspect]
     Indication: MULTIPLE MYELOMA
     Dosage: 20.00 MG, INTRAVENOUS
     Route: 042
     Dates: start: 20070910, end: 20070922
  3. PAXIL [Concomitant]

REACTIONS (3)
  - CEREBELLAR HAEMORRHAGE [None]
  - DEPRESSION [None]
  - FALL [None]
